FAERS Safety Report 6168858-6 (Version None)
Quarter: 2009Q2

REPORT INFORMATION
  Report Type: 
  Country: None (occurrence: None)
  Receive Date: 20090424
  Receipt Date: 20090424
  Transmission Date: 20091009
  Serious: Yes (Hospitalization)
  Sender: FDA-Public Use
  Company Number: None

PATIENT
  Sex: Female
  Weight: 71.2147 kg

DRUGS (2)
  1. DURAGESIC-75 [Suspect]
     Indication: PAIN
     Dosage: 75 MICROGRAMS CHANGE 72 HOURS TRANSDERMAL
     Route: 062
     Dates: start: 20051223, end: 20070723
  2. DURAGESIC-75 [Suspect]
     Indication: PAIN
     Dosage: 75 MICROGRAMS CHANGE 72 HOURS TRANSDERMAL
     Route: 062
     Dates: start: 20070728, end: 20080927

REACTIONS (1)
  - COLECTOMY [None]
